FAERS Safety Report 6123597-2 (Version None)
Quarter: 2009Q1

REPORT INFORMATION
  Report Type: 
  Country: None (occurrence: None)
  Receive Date: 20090319
  Receipt Date: 20090309
  Transmission Date: 20090719
  Serious: Yes (Other)
  Sender: FDA-Public Use
  Company Number: PHHY2009ZA09115

PATIENT
  Age: 14 Year
  Sex: Male

DRUGS (8)
  1. RITALIN [Suspect]
     Indication: ATTENTION DEFICIT/HYPERACTIVITY DISORDER
     Dosage: UNK
  2. RITALIN-SR [Suspect]
  3. CONCERTA [Suspect]
     Indication: ATTENTION DEFICIT/HYPERACTIVITY DISORDER
     Dosage: 18 MG
  4. CONCERTA [Suspect]
     Dosage: 36 MG
  5. CONCERTA [Suspect]
     Dosage: 18 MG
  6. HUMALOG [Concomitant]
     Indication: DIABETES MELLITUS
     Dosage: UNK
  7. HUMULIN N [Concomitant]
     Indication: DIABETES MELLITUS
     Dosage: UNK
  8. LANTUS [Concomitant]
     Indication: DIABETES MELLITUS
     Dosage: UNK

REACTIONS (4)
  - DEPRESSION [None]
  - FEELING ABNORMAL [None]
  - LACK OF SPONTANEOUS SPEECH [None]
  - SOCIAL AVOIDANT BEHAVIOUR [None]
